FAERS Safety Report 15234615 (Version 1)
Quarter: 2018Q4

REPORT INFORMATION
  Report Type: Spontaneous
  Country: US (occurrence: US)
  Receive Date: 20180803
  Receipt Date: 20180803
  Transmission Date: 20190204
  Serious: No
  Sender: FDA-Public Use
  Company Number: US-TEVA-2018-US-937826

PATIENT

DRUGS (1)
  1. NICOTINE ICE MINT [Suspect]
     Active Substance: NICOTINE
     Dosage: GUM
     Route: 065

REACTIONS (2)
  - Product use complaint [Unknown]
  - Drug ineffective [Unknown]
